FAERS Safety Report 8254405-1 (Version None)
Quarter: 2012Q2

REPORT INFORMATION
  Report Type: 
  Country: None (occurrence: None)
  Receive Date: 20120402
  Receipt Date: 20120326
  Transmission Date: 20120825
  Serious: No
  Sender: FDA-Public Use
  Company Number: US-AMGEN-USASP2012019280

PATIENT
  Age: 68 Year
  Sex: Female

DRUGS (1)
  1. ENBREL [Suspect]
     Indication: RHEUMATOID ARTHRITIS
     Dosage: 50 MG, QWK
     Dates: start: 20030101, end: 20120311

REACTIONS (6)
  - UPPER RESPIRATORY TRACT CONGESTION [None]
  - HAEMORRHAGE URINARY TRACT [None]
  - PRODUCTIVE COUGH [None]
  - SINUS CONGESTION [None]
  - NASOPHARYNGITIS [None]
  - URINARY TRACT INFECTION [None]
